FAERS Safety Report 19855702 (Version 1)
Quarter: 2021Q3

REPORT INFORMATION
  Report Type: Spontaneous
  Country: US (occurrence: US)
  Receive Date: 20210920
  Receipt Date: 20210920
  Transmission Date: 20211014
  Serious: Yes (Death, Life-Threatening, Hospitalization)
  Sender: FDA-Public Use
  Company Number: None

PATIENT
  Age: 62 Year
  Sex: Male

DRUGS (12)
  1. METOPROLOL SUCCINATE 100MG TABLETS [Concomitant]
  2. TASIGNA [Suspect]
     Active Substance: NILOTINIB
     Indication: ACUTE LYMPHOCYTIC LEUKAEMIA
     Route: 048
     Dates: start: 20190513, end: 20210906
  3. TACROLIMUS. [Suspect]
     Active Substance: TACROLIMUS
     Indication: ACUTE LYMPHOCYTIC LEUKAEMIA
     Route: 048
     Dates: start: 20200203, end: 20210906
  4. ACYCLOVIR 400MG TABLETS [Concomitant]
  5. CLOPIDOGREL 75MG TABLETS [Concomitant]
  6. IBUPROFEN 400MG TABLETS [Concomitant]
  7. TACROLIMUS. [Suspect]
     Active Substance: TACROLIMUS
     Indication: STEM CELL TRANSPLANT
     Route: 048
     Dates: start: 20200203, end: 20210906
  8. PREDNISONE 10MG TABLETS [Concomitant]
     Active Substance: PREDNISONE
  9. URSODIOL 300MG CAPSULES [Concomitant]
  10. MAGNESIUM OXIDE 400MG TABLETS [Concomitant]
  11. OXYCONTIN 10MG TABLETS [Concomitant]
  12. ASPIRIN 81MG TABLETS [Concomitant]

REACTIONS (3)
  - Respiratory failure [None]
  - Catheterisation cardiac [None]
  - Acute myocardial infarction [None]

NARRATIVE: CASE EVENT DATE: 20210917
